FAERS Safety Report 23380002 (Version 1)
Quarter: 2024Q1

REPORT INFORMATION
  Report Type: Report from Study
  Country: US (occurrence: US)
  Receive Date: 20240109
  Receipt Date: 20240109
  Transmission Date: 20240409
  Serious: Yes (Other)
  Sender: FDA-Public Use
  Company Number: US-ABBVIE-5575062

PATIENT
  Age: 72 Year
  Sex: Male

DRUGS (1)
  1. SKYRIZI [Suspect]
     Active Substance: RISANKIZUMAB-RZAA
     Indication: Psoriasis
     Route: 058
     Dates: start: 20221229

REACTIONS (5)
  - Spinal operation [Unknown]
  - Gait disturbance [Unknown]
  - Dysstasia [Unknown]
  - Bacterial infection [Unknown]
  - Acne [Unknown]

NARRATIVE: CASE EVENT DATE: 20230701
